FAERS Safety Report 5647588-0 (Version None)
Quarter: 2008Q1

REPORT INFORMATION
  Report Type: 
  Country: None (occurrence: None)
  Receive Date: 20080303
  Receipt Date: 20080221
  Transmission Date: 20080703
  Serious: Yes (Other)
  Sender: FDA-Public Use
  Company Number: GB-PFIZER INC-2008016919

PATIENT
  Sex: Male

DRUGS (1)
  1. LIPITOR [Suspect]
     Dates: start: 20010101, end: 20080201

REACTIONS (3)
  - BALANCE DISORDER [None]
  - OEDEMA PERIPHERAL [None]
  - POLYURIA [None]
